FAERS Safety Report 12254828 (Version 1)
Quarter: 2016Q2

REPORT INFORMATION
  Report Type: Spontaneous
  Country: US (occurrence: US)
  Receive Date: 20160411
  Receipt Date: 20160411
  Transmission Date: 20160815
  Serious: Yes (Hospitalization, Other)
  Sender: FDA-Public Use
  Company Number: ADR-2015-00582

PATIENT
  Age: 66 Year
  Sex: Female

DRUGS (22)
  1. BUPIVACAINE. [Suspect]
     Active Substance: BUPIVACAINE
     Dosage: 14.6MG/DAY
     Route: 037
  2. METHOCARBAMOL. [Suspect]
     Active Substance: METHOCARBAMOL
  3. OMEPRAZOLE. [Suspect]
     Active Substance: OMEPRAZOLE
  4. CLONIDINE. [Suspect]
     Active Substance: CLONIDINE
     Dosage: 244MCG/DAY
     Route: 037
  5. PROCHLORPERAZINE. [Suspect]
     Active Substance: PROCHLORPERAZINE
  6. SERTRALINE [Suspect]
     Active Substance: SERTRALINE HYDROCHLORIDE
  7. HYDROMORPHONE [Suspect]
     Active Substance: HYDROMORPHONE
     Dosage: 13.9MG/DAY
     Route: 037
  8. BUSPIRONE [Suspect]
     Active Substance: BUSPIRONE HYDROCHLORIDE
  9. SYMBICORT [Suspect]
     Active Substance: BUDESONIDE\FORMOTEROL FUMARATE DIHYDRATE
  10. ALPRAZOLAM. [Suspect]
     Active Substance: ALPRAZOLAM
  11. DIPHENHYDRAMINE. [Suspect]
     Active Substance: DIPHENHYDRAMINE
  12. ASPIRIN. [Suspect]
     Active Substance: ASPIRIN
  13. SPIRIVA [Suspect]
     Active Substance: TIOTROPIUM BROMIDE MONOHYDRATE
  14. MELATONIN [Suspect]
     Active Substance: MELATONIN
  15. OXYCODONE [Suspect]
     Active Substance: OXYCODONE
  16. VENTOLIN [Suspect]
     Active Substance: ALBUTEROL SULFATE
  17. CARVEDILOL. [Suspect]
     Active Substance: CARVEDILOL
  18. LOVASTATIN. [Suspect]
     Active Substance: LOVASTATIN
  19. COMPOUNDED BACLOFEN [Suspect]
     Active Substance: BACLOFEN
     Dosage: 270MCG/DAY
     Route: 037
  20. LAMOTRIGINE. [Suspect]
     Active Substance: LAMOTRIGINE
  21. AMLODIPINE [Suspect]
     Active Substance: AMLODIPINE BESYLATE
  22. MS CONTIN [Suspect]
     Active Substance: MORPHINE SULFATE

REACTIONS (2)
  - Overdose [Recovered/Resolved]
  - Loss of consciousness [Recovered/Resolved]

NARRATIVE: CASE EVENT DATE: 20150315
